FAERS Safety Report 12220065 (Version 1)
Quarter: 2016Q1

REPORT INFORMATION
  Report Type: Spontaneous
  Country: US (occurrence: US)
  Receive Date: 20160330
  Receipt Date: 20160330
  Transmission Date: 20160526
  Serious: Yes (Other)
  Sender: FDA-Public Use
  Company Number: US-BEH-2016060462

PATIENT
  Sex: Female
  Weight: 58 kg

DRUGS (10)
  1. LMX [Concomitant]
     Active Substance: LIDOCAINE
  2. EFFEXOR [Concomitant]
     Active Substance: VENLAFAXINE HYDROCHLORIDE
  3. HIZENTRA [Suspect]
     Active Substance: HUMAN IMMUNOGLOBULIN G
     Indication: HYPER IGM SYNDROME
     Dosage: STRENGTH OF DOSAGE VIAL: 10GM 50ML VIAL
     Route: 058
  4. PREDNISONE. [Concomitant]
     Active Substance: PREDNISONE
  5. VIVELLE-DOT [Concomitant]
     Active Substance: ESTRADIOL
  6. PROGESTERONE. [Concomitant]
     Active Substance: PROGESTERONE
  7. DIPHENHYDRAMINE. [Concomitant]
     Active Substance: DIPHENHYDRAMINE
  8. EPIPEN [Concomitant]
     Active Substance: EPINEPHRINE
  9. FIRST-TESTOSTERONE MC [Concomitant]
  10. FLORINEF ACETATE [Concomitant]
     Active Substance: FLUDROCORTISONE ACETATE

REACTIONS (1)
  - Respiratory tract infection [Unknown]
